FAERS Safety Report 4721102-6 (Version None)
Quarter: 2005Q3

REPORT INFORMATION
  Report Type: 
  Country: None (occurrence: None)
  Receive Date: 20050719
  Receipt Date: 20041216
  Transmission Date: 20060218
  Serious: Yes (Other)
  Sender: FDA-Public Use
  Company Number: 2004094386

PATIENT
  Age: 75 Year
  Sex: Female
  Weight: 62.5964 kg

DRUGS (10)
  1. CELEBREX [Suspect]
     Indication: ARTHRITIS
     Dosage: 200 MG (200 MG,DAILY), ORAL
     Route: 048
     Dates: start: 20010101
  2. WARFARIN SODIUM [Concomitant]
  3. TERAZOSIN HYDROCHLORIDE [Concomitant]
  4. DIGOXIN [Concomitant]
  5. ENALAPRIL MALEATE [Concomitant]
  6. AMLODIPINE BESYLATE [Concomitant]
  7. CLOPIDOGREL BISULFATE [Concomitant]
  8. OCUVITE (ASCORBIC ACID, RETINOL, TOCOPHEROL) [Concomitant]
  9. CALCIUM (CALCIUM) [Concomitant]
  10. CYANOCOBALAMIN [Concomitant]

REACTIONS (2)
  - CEREBROVASCULAR ACCIDENT [None]
  - VISION BLURRED [None]
